FAERS Safety Report 4689785-7 (Version None)
Quarter: 2005Q2

REPORT INFORMATION
  Report Type: 
  Country: None (occurrence: None)
  Receive Date: 20050614
  Receipt Date: 20040707
  Transmission Date: 20051028
  Serious: Yes (Hospitalization)
  Sender: FDA-Public Use
  Company Number: JP-BRISTOL-MYERS SQUIBB COMPANY-12636106

PATIENT
  Age: 45 Year
  Sex: Male

DRUGS (7)
  1. EFAVIRENZ [Suspect]
     Indication: HIV INFECTION
     Dosage: ONCE DAILY
     Route: 048
     Dates: start: 20040127, end: 20040208
  2. ZERIT [Suspect]
     Indication: HIV INFECTION
     Route: 048
     Dates: start: 20040127
  3. EPIVIR [Suspect]
     Indication: HIV INFECTION
     Route: 048
     Dates: start: 20040127
  4. FORTOVASE [Suspect]
     Indication: HIV INFECTION
     Route: 048
     Dates: start: 20040209
  5. NORVIR [Suspect]
     Indication: HIV INFECTION
     Route: 048
     Dates: start: 20040209
  6. DIFLUCAN [Concomitant]
     Route: 048
     Dates: start: 20040108, end: 20040331
  7. ZITHROMAC [Concomitant]
     Dosage: DOSE UNKNOWN 08-JAN-2004/05-FEB-2004; 600 MG DAILY 06-FEB-2004/UNKNOWN.
     Route: 048
     Dates: start: 20040108

REACTIONS (4)
  - ATYPICAL MYCOBACTERIAL INFECTION [None]
  - IMMUNE RECONSTITUTION SYNDROME [None]
  - MALAISE [None]
  - PYREXIA [None]
